FAERS Safety Report 8467858-0 (Version None)
Quarter: 2012Q2

REPORT INFORMATION
  Report Type: 
  Country: None (occurrence: None)
  Receive Date: 20120626
  Receipt Date: 20120621
  Transmission Date: 20120825
  Serious: Yes (Other)
  Sender: FDA-Public Use
  Company Number: MK-GLAXOSMITHKLINE-B0809231A

PATIENT
  Age: 71 Year
  Sex: Male

DRUGS (4)
  1. AVODART [Suspect]
     Indication: BENIGN PROSTATIC HYPERPLASIA
     Dosage: 1CAP PER DAY
     Route: 065
  2. METFORMIN HCL [Concomitant]
  3. BISOPROLOL FUMARATE [Concomitant]
  4. DIAZEPAM [Concomitant]

REACTIONS (2)
  - HEPATIC ENZYME ABNORMAL [None]
  - ABDOMINAL PAIN UPPER [None]
